FAERS Safety Report 6186543-1 (Version None)
Quarter: 2009Q2

REPORT INFORMATION
  Report Type: 
  Country: None (occurrence: None)
  Receive Date: 20090512
  Receipt Date: 20090428
  Transmission Date: 20091009
  Serious: Yes (Other)
  Sender: FDA-Public Use
  Company Number: PHHY2009US16055

PATIENT
  Age: 56 Year
  Sex: Male

DRUGS (2)
  1. CARBAMAZEPINE [Suspect]
     Indication: TRIGEMINAL NEURALGIA
     Dosage: 200 MG DAILY
  2. CARBAMAZEPINE [Suspect]
     Indication: FACIAL PAIN
     Dosage: 800 MG DAILY

REACTIONS (3)
  - ATAXIA [None]
  - DRUG INEFFECTIVE [None]
  - DYSARTHRIA [None]
